FAERS Safety Report 14506235 (Version 1)
Quarter: 2018Q1

REPORT INFORMATION
  Report Type: Spontaneous
  Country: US (occurrence: US)
  Receive Date: 20180208
  Receipt Date: 20180208
  Transmission Date: 20180509
  Serious: Yes (Hospitalization)
  Sender: FDA-Public Use
  Company Number: US-LPDUSPRD-20180116

PATIENT
  Age: 80 Year
  Sex: Male

DRUGS (26)
  1. PROTONIX [Concomitant]
     Active Substance: PANTOPRAZOLE SODIUM
     Dosage: 80 MG (40 MG, 2 IN 1 D)
     Route: 048
     Dates: start: 20171214
  2. ZEMPLAR [Concomitant]
     Active Substance: PARICALCITOL
     Dosage: 2 MCG,EVERY SCHED. DIALYSIS TX
     Route: 042
     Dates: start: 20170111
  3. LEVOTHYROXINE. [Concomitant]
     Active Substance: LEVOTHYROXINE
     Dosage: 125 MG, AS DIRECTED
     Route: 048
     Dates: start: 20171214
  4. DOXAZOSIN [Concomitant]
     Active Substance: DOXAZOSIN\DOXAZOSIN MESYLATE
     Dosage: 2 MG (2 MG, 1 IN 1 D)
     Route: 048
     Dates: start: 20171214
  5. COLACE [Concomitant]
     Active Substance: DOCUSATE SODIUM
     Dosage: 200 MG (100 MG, 2 IN 1 D)
     Route: 048
     Dates: start: 20171214
  6. ATORVASTATIN CALCIUM. [Concomitant]
     Active Substance: ATORVASTATIN CALCIUM
     Dosage: 40 MG (40 MG, AT BEDTIME)
     Route: 048
     Dates: start: 20171214
  7. NORCO [Concomitant]
     Active Substance: ACETAMINOPHEN\HYDROCODONE BITARTRATE
     Dosage: 5-325 MG AS REQUIRED
     Route: 048
     Dates: start: 20171214
  8. ISOSORBIDE MONONITRATE. [Concomitant]
     Active Substance: ISOSORBIDE MONONITRATE
     Dosage: 30 MG (30 MG, 1 IN 1 D)
     Route: 048
     Dates: start: 20171214
  9. MIRALAX [Concomitant]
     Active Substance: POLYETHYLENE GLYCOL 3350
     Dosage: 34 GM (17 GM, 2 IN 1 D)
     Route: 048
     Dates: start: 20171214
  10. AZELASTINE. [Concomitant]
     Active Substance: AZELASTINE HYDROCHLORIDE
     Dosage: 274 MCG (137 MCG, 2 IN 1 D)
     Route: 045
     Dates: start: 20171214
  11. ENGERIX-B [Concomitant]
     Active Substance: HEPATITIS B VIRUS SUBTYPE ADW2 HBSAG SURFACE PROTEIN ANTIGEN
     Dosage: 40 MCG, SELECTED DATES
     Route: 030
     Dates: start: 20180111
  12. BREO ELLIPTA [Concomitant]
     Active Substance: FLUTICASONE FUROATE\VILANTEROL TRIFENATATE
     Dosage: 200-25 MCG (1 IN 1 D)
     Route: 065
     Dates: start: 20171214
  13. HEPARIN [Concomitant]
     Active Substance: HEPARIN SODIUM
     Dosage: 2ML,EVERY SCHED.DIAYLSIS TX
     Route: 050
     Dates: start: 20171214
  14. LEVEMIR [Concomitant]
     Active Substance: INSULIN DETEMIR
     Dosage: 100 IU AT BEDTIME
     Route: 058
     Dates: start: 20171214
  15. VENOFER [Suspect]
     Active Substance: IRON SUCROSE
     Dosage: 50MG,WEEKLY ON 1ST SCHEDULE TX
     Route: 040
  16. VITAMIN B COMPLEX [Concomitant]
     Active Substance: CYANOCOBALAMIN\DEXPANTHENOL\NIACINAMIDE\PYRIDOXINE HYDROCHLORIDE\RIBOFLAVIN 5^-PHOSPHATE SODIUM\THIAMINE HYDROCHLORIDE\VITAMIN B COMPLEX
     Dosage: 2500 MCG (2500MCG, 1 IN 1 D)
     Route: 048
     Dates: start: 20171214
  17. FOLIC ACID. [Concomitant]
     Active Substance: FOLIC ACID
     Dosage: 1 MG (1 MG, 1 IN 1 D)
     Route: 048
     Dates: start: 20171214
  18. MIRCERA [Suspect]
     Active Substance: METHOXY POLYETHYLENE GLYCOL-EPOETIN BETA
     Dosage: 50 MCG, 1 IN 2 WK
     Route: 040
     Dates: start: 20171214
  19. SENNOSIDE [Concomitant]
     Active Substance: SENNOSIDES
     Dosage: 17.2 GM (8.6 GM, 2 IN 1 D)
     Route: 048
     Dates: start: 20171214
  20. RENVELA [Concomitant]
     Active Substance: SEVELAMER CARBONATE
     Dosage: 2400 MG (800 MG, 3 IN 1 D)
     Route: 048
     Dates: start: 20171214
  21. DULCOLAX NOS [Concomitant]
     Active Substance: BISACODYL OR DOCUSATE SODIUM
     Dosage: 10 MG AS REQUIRED
     Route: 054
     Dates: start: 20171214
  22. ULORIC [Concomitant]
     Active Substance: FEBUXOSTAT
     Dosage: 40 MG (40 MG, 1 IN 1 D)
     Route: 048
     Dates: start: 20171214
  23. LISINOPRIL. [Concomitant]
     Active Substance: LISINOPRIL
     Dosage: 40 MG (20 MG, 2 IN 1 D)
     Route: 048
     Dates: start: 20171214
  24. NIFEDIPINE. [Concomitant]
     Active Substance: NIFEDIPINE
     Dosage: 60 MG (20 MG, 3 IN 1 D)
     Route: 048
     Dates: start: 20171214
  25. WARFARIN [Concomitant]
     Active Substance: WARFARIN
     Dosage: 7.5 MG (7.5 MG, 1 IN 1 D)
     Route: 048
     Dates: start: 20171214
  26. PROAIR HFA [Concomitant]
     Active Substance: ALBUTEROL SULFATE
     Dosage: 540MCG (90MCG, 1 IN 4 HR)
     Route: 065
     Dates: start: 20171214

REACTIONS (2)
  - Hospitalisation [Unknown]
  - Inappropriate schedule of drug administration [Unknown]

NARRATIVE: CASE EVENT DATE: 20180105
